FAERS Safety Report 25259457 (Version 2)
Quarter: 2025Q2

REPORT INFORMATION
  Report Type: Report from Study
  Country: ES (occurrence: ES)
  Receive Date: 20250501
  Receipt Date: 20250505
  Transmission Date: 20250717
  Serious: Yes (Death, Hospitalization)
  Sender: ABBVIE
  Company Number: ES-ABBVIE-6247431

PATIENT
  Age: 66 Year
  Sex: Male

DRUGS (2)
  1. CARBIDOPA\LEVODOPA [Suspect]
     Active Substance: CARBIDOPA\LEVODOPA
     Indication: Parkinson^s disease
     Route: 050
     Dates: start: 20200709
  2. CARBIDOPA\LEVODOPA [Suspect]
     Active Substance: CARBIDOPA\LEVODOPA

REACTIONS (2)
  - Aspiration [Fatal]
  - Pneumonia aspiration [Fatal]

NARRATIVE: CASE EVENT DATE: 20250416
